FAERS Safety Report 5476575-0 (Version None)
Quarter: 2007Q4

REPORT INFORMATION
  Report Type: 
  Country: None (occurrence: None)
  Receive Date: 20071004
  Receipt Date: 20071001
  Transmission Date: 20080405
  Serious: Yes (Life-Threatening, Other)
  Sender: FDA-Public Use
  Company Number: PHMT2007CA01925

PATIENT
  Age: 45 Year
  Sex: Male

DRUGS (4)
  1. CLOZARIL [Suspect]
     Indication: SCHIZOPHRENIA
     Dosage: 400 MG
     Route: 048
     Dates: start: 19970803, end: 20070914
  2. INFUFER [Interacting]
  3. RIBAVIRIN [Interacting]
  4. NEUPOGEN [Concomitant]

REACTIONS (2)
  - NEUTROPENIA [None]
  - PNEUMOCOCCAL SEPSIS [None]
